FAERS Safety Report 15840427 (Version 2)
Quarter: 2019Q1

REPORT INFORMATION
  Report Type: Report from Study
  Country: CN (occurrence: CN)
  Receive Date: 20190118
  Receipt Date: 20190125
  Transmission Date: 20190417
  Serious: Yes (Hospitalization)
  Sender: FDA-Public Use
  Company Number: CN-AMGEN-CHNCT2019006845

PATIENT
  Sex: Male

DRUGS (10)
  1. HEPARIN SODIUM. [Concomitant]
     Active Substance: HEPARIN SODIUM
     Indication: AZOTAEMIA
     Dosage: 125 IU, TID
     Route: 042
     Dates: start: 20150210
  2. L-CARNITINE [Concomitant]
     Active Substance: LEVOCARNITINE
     Indication: AZOTAEMIA
     Dosage: 1 G, 3X/WEEK
     Route: 042
     Dates: start: 20180629
  3. RABEPRAZOLE [Concomitant]
     Active Substance: RABEPRAZOLE
     Indication: CHRONIC GASTRITIS
     Dosage: 20 MG, QD
     Route: 048
     Dates: start: 20181209
  4. EPO [Concomitant]
     Active Substance: ERYTHROPOIETIN
     Indication: NEPHROGENIC ANAEMIA
     Dosage: 4000 UNIT, 2 TIMES/WK
     Route: 058
     Dates: start: 20150210
  5. CINACALCET HCL [Suspect]
     Active Substance: CINACALCET HYDROCHLORIDE
     Dosage: 75 MG, UNK
     Route: 048
     Dates: start: 20181219
  6. ENOXAPARIN SODIUM. [Concomitant]
     Active Substance: ENOXAPARIN SODIUM
     Indication: AZOTAEMIA
     Dosage: 6000 IU, TID
     Route: 042
     Dates: start: 20150210
  7. IRON POLYMALTOSE COMPLEX [Concomitant]
     Indication: NEPHROGENIC ANAEMIA
     Dosage: 0.15 G, BID
     Route: 048
     Dates: start: 20150210
  8. CALCITRIOL. [Concomitant]
     Active Substance: CALCITRIOL
     Indication: CHRONIC KIDNEY DISEASE-MINERAL AND BONE DISORDER
     Dosage: 3 UG, 3X/WEEK
     Route: 048
     Dates: start: 20181119
  9. CINACALCET HCL [Suspect]
     Active Substance: CINACALCET HYDROCHLORIDE
     Indication: HYPERPARATHYROIDISM SECONDARY
     Dosage: 25 MG, UNK
     Route: 048
     Dates: start: 20180619, end: 20181219
  10. MOSAPRIDE CITRATE [Concomitant]
     Active Substance: MOSAPRIDE CITRATE
     Indication: CHRONIC GASTRITIS
     Dosage: 5 MG, TID
     Route: 048
     Dates: start: 20181209

REACTIONS (1)
  - Large intestine polyp [Recovered/Resolved]
